FAERS Safety Report 6071675-9 (Version None)
Quarter: 2009Q1

REPORT INFORMATION
  Report Type: 
  Country: None (occurrence: None)
  Receive Date: 20090210
  Receipt Date: 20090205
  Transmission Date: 20090719
  Serious: Yes (Death)
  Sender: FDA-Public Use
  Company Number: ZA-BRISTOL-MYERS SQUIBB COMPANY-14491633

PATIENT
  Age: 20 Year
  Sex: Female
  Weight: 58 kg

DRUGS (5)
  1. EFAVIRENZ [Suspect]
     Indication: HIV INFECTION
     Route: 048
     Dates: start: 20080908, end: 20081105
  2. STAVUDINE [Suspect]
     Indication: HIV INFECTION
     Route: 048
     Dates: start: 20081010, end: 20081105
  3. LAMIVUDINE [Suspect]
     Indication: HIV INFECTION
     Route: 048
     Dates: start: 20081010, end: 20081105
  4. COMBIVIR [Suspect]
     Indication: HIV INFECTION
     Dosage: 1 DOSAGE FORM= 300MG/150MG
     Route: 048
     Dates: start: 20080908, end: 20081009
  5. CO-TRIMOXAZOLE [Concomitant]
     Indication: PROPHYLAXIS
     Dates: end: 20081009

REACTIONS (1)
  - DEATH [None]
